FAERS Safety Report 6821218-4 (Version None)
Quarter: 2010Q3

REPORT INFORMATION
  Report Type: 
  Country: None (occurrence: None)
  Receive Date: 20100707
  Receipt Date: 20080505
  Transmission Date: 20110219
  Serious: No
  Sender: FDA-Public Use
  Company Number: US-PFIZER INC-2008031259

PATIENT
  Weight: 58.181 kg

DRUGS (4)
  1. SERTRALINE [Suspect]
     Indication: DEPRESSION
     Dates: start: 20071001
  2. SERTRALINE [Suspect]
     Indication: ANXIETY
  3. SERTRALINE [Suspect]
     Dates: end: 20080313
  4. SERTRALINE [Suspect]

REACTIONS (6)
  - ASTHENIA [None]
  - BALANCE DISORDER [None]
  - CONFUSIONAL STATE [None]
  - COORDINATION ABNORMAL [None]
  - DIZZINESS [None]
  - TINNITUS [None]
